FAERS Safety Report 20492966 (Version 1)
Quarter: 2022Q1

REPORT INFORMATION
  Report Type: Spontaneous
  Country: GB (occurrence: GB)
  Receive Date: 20220219
  Receipt Date: 20220219
  Transmission Date: 20220423
  Serious: Yes (Other)
  Sender: FDA-Public Use
  Company Number: None

PATIENT
  Age: 56 Year
  Sex: Male
  Weight: 148 kg

DRUGS (6)
  1. DOXAZOSIN [Suspect]
     Active Substance: DOXAZOSIN MESYLATE
     Dosage: 1 MILLIGRAM DAILY;
     Route: 065
     Dates: start: 20220107, end: 20220207
  2. ATENOLOL [Concomitant]
     Active Substance: ATENOLOL
     Dosage: 50 MILLIGRAM DAILY;
     Dates: start: 20211210
  3. FUROSEMIDE [Concomitant]
     Active Substance: FUROSEMIDE
     Dosage: 40 MILLIGRAM DAILY; EACH MORNING
     Dates: start: 20211210
  4. HYDROCORTISONE ACETATE [Concomitant]
     Active Substance: HYDROCORTISONE ACETATE
     Dosage: 240 GRAM DAILY; APPLY
     Dates: start: 20211210, end: 20220122
  5. FUSIDIC ACID [Concomitant]
     Active Substance: FUSIDIC ACID
     Dosage: 240 GRAM DAILY; APPLY
     Dates: start: 20211210, end: 20220122
  6. LERCANIDIPINE [Concomitant]
     Active Substance: LERCANIDIPINE
     Dosage: 10 MILLIGRAM DAILY;
     Dates: start: 20220207

REACTIONS (1)
  - Depression [Unknown]
